FAERS Safety Report 4590361-5 (Version None)
Quarter: 2005Q1

REPORT INFORMATION
  Report Type: 
  Country: None (occurrence: None)
  Receive Date: 20050217
  Receipt Date: 20050210
  Transmission Date: 20050727
  Serious: Yes (Death)
  Sender: FDA-Public Use
  Company Number: MK200502-0131-1

PATIENT
  Age: 42 Year
  Sex: Male

DRUGS (4)
  1. TOFRANIL TAB [Suspect]
  2. CLOZAPINE [Suspect]
     Dosage: 50-400 MG QD PO
     Route: 048
     Dates: start: 20010201, end: 20041101
  3. AMITRIPTYLINE HCL [Suspect]
  4. LUVOX [Concomitant]

REACTIONS (1)
  - DRUG TOXICITY [None]
